FAERS Safety Report 6448327-6 (Version None)
Quarter: 2009Q4

REPORT INFORMATION
  Report Type: 
  Country: None (occurrence: None)
  Receive Date: 20091120
  Receipt Date: 20091112
  Transmission Date: 20100525
  Serious: Yes (Other)
  Sender: FDA-Public Use
  Company Number: PHEH2009US14528

PATIENT
  Sex: Male
  Weight: 85 kg

DRUGS (13)
  1. EXJADE [Suspect]
     Indication: HAEMOSIDEROSIS
     Dosage: 1500 MG, QD
     Route: 048
     Dates: start: 20090204, end: 20091021
  2. EXJADE [Suspect]
     Dosage: 1500 MG, QD
     Route: 048
     Dates: start: 20091109
  3. TYLENOL (CAPLET) [Concomitant]
     Dosage: 500 MEQ/KG, BID
     Route: 048
  4. ASPIRIN [Concomitant]
     Dosage: 325 MG, BID
     Route: 048
  5. NEURONTIN [Concomitant]
     Dosage: 600 MG, TID
     Route: 048
  6. MIRTAZAPINE [Concomitant]
     Dosage: 30 MG, QD
     Route: 048
  7. MORPHINE SULFATE [Concomitant]
     Dosage: 15 MG, Q12H
     Route: 048
  8. MULTI-VITAMINS [Concomitant]
     Dosage: 1 TAB
     Route: 048
  9. ASCORBIC ACID [Concomitant]
     Dosage: 1 TAB PO QD
     Route: 048
  10. VITAMIN D [Concomitant]
     Dosage: 1 TAB PO BID
     Route: 048
  11. VORICONAZOLE [Concomitant]
     Dosage: 400 MG, BID
     Route: 048
  12. LORAZEPAM [Concomitant]
     Indication: PAIN
     Dosage: 0.5MG, 1-2 TABS Q4HRS PRN
     Route: 048
  13. REGLAN [Concomitant]
     Indication: NAUSEA
     Dosage: 10 MG, PRN

REACTIONS (10)
  - ARTHRALGIA [None]
  - BLOOD URINE PRESENT [None]
  - BONE PAIN [None]
  - BREATH SOUNDS ABSENT [None]
  - BRONCHITIS [None]
  - DYSPNOEA EXERTIONAL [None]
  - PRODUCTIVE COUGH [None]
  - PROTEINURIA [None]
  - RENAL DISORDER [None]
  - RHONCHI [None]
